FAERS Safety Report 9726570 (Version 1)
Quarter: 2013Q4

REPORT INFORMATION
  Report Type: Spontaneous
  Country: BR (occurrence: BR)
  Receive Date: 20131203
  Receipt Date: 20131203
  Transmission Date: 20140711
  Serious: Yes (Other)
  Sender: FDA-Public Use
  Company Number: BR-GLAXOSMITHKLINE-A1051900A

PATIENT
  Age: 25 Year
  Sex: Male

DRUGS (2)
  1. NEOTIGASON [Suspect]
     Indication: PSORIASIS
     Dosage: 30MG PER DAY
     Route: 048
     Dates: start: 2013
  2. EUTHYROX [Concomitant]

REACTIONS (1)
  - Atrioventricular block complete [Unknown]
